FAERS Safety Report 14242057 (Version 8)
Quarter: 2019Q1

REPORT INFORMATION
  Report Type: Report from Study
  Country: DE (occurrence: DE)
  Receive Date: 20171201
  Receipt Date: 20190322
  Transmission Date: 20190417
  Serious: Yes (Other)
  Sender: FDA-Public Use
  Company Number: DE-TEVA-2017-DE-826423

PATIENT
  Age: 22 Year
  Sex: Male
  Weight: 61 kg

DRUGS (22)
  1. DEKRISTOL [Concomitant]
     Active Substance: CHOLECALCIFEROL
     Indication: CONSTIPATION
     Route: 048
     Dates: start: 20170607, end: 20170615
  2. VITAMIN B6 [Concomitant]
     Active Substance: PYRIDOXINE HYDROCHLORIDE
     Indication: PROPHYLAXIS
     Dosage: 200 MILLIGRAM DAILY;
     Dates: start: 20170621, end: 20171018
  3. TERIZIDONE [Suspect]
     Active Substance: TERIZIDONE
     Dosage: 150 MILLIGRAM DAILY;
     Route: 048
     Dates: start: 20170619
  4. DELTYBA [Suspect]
     Active Substance: DELAMANID
     Indication: PULMONARY TUBERCULOSIS
     Dosage: 200 MILLIGRAM DAILY;
     Route: 048
     Dates: start: 20170712, end: 20170927
  5. DELTYBA [Suspect]
     Active Substance: DELAMANID
     Dates: start: 20171012, end: 20171230
  6. ETHAMBUTOL [Suspect]
     Active Substance: ETHAMBUTOL HYDROCHLORIDE
     Dates: start: 20170706, end: 20170710
  7. MOXIFLOXACIN. [Suspect]
     Active Substance: MOXIFLOXACIN
     Indication: PULMONARY TUBERCULOSIS
     Dosage: 400 MILLIGRAM DAILY;
     Route: 048
     Dates: start: 20170603, end: 20170928
  8. TERIZIDONE [Suspect]
     Active Substance: TERIZIDONE
     Indication: PULMONARY TUBERCULOSIS
     Dosage: 750 MILLIGRAM DAILY; 750 MG (2X250+1X250) ORALLY
     Route: 048
     Dates: start: 20170619, end: 20171018
  9. PROTHIONAMIDE [Suspect]
     Active Substance: PROTIONAMIDE
     Indication: PULMONARY TUBERCULOSIS
     Dosage: 750 MILLIGRAM DAILY; 750 MG (2X250+1X250)
     Route: 048
     Dates: start: 20170618, end: 20170723
  10. DEKRISTOL [Concomitant]
     Active Substance: CHOLECALCIFEROL
     Indication: PROPHYLAXIS
     Route: 048
     Dates: start: 20170619
  11. DELTYBA [Suspect]
     Active Substance: DELAMANID
     Dosage: 200 MILLIGRAM DAILY;
     Route: 048
     Dates: start: 20171012, end: 20171230
  12. DELTYBA [Suspect]
     Active Substance: DELAMANID
     Route: 048
     Dates: start: 20170712, end: 20170927
  13. ETHAMBUTOL [Suspect]
     Active Substance: ETHAMBUTOL HYDROCHLORIDE
     Dosage: 1000 MILLIGRAM DAILY;
     Route: 048
     Dates: start: 20171014
  14. MOXIFLOXACIN. [Suspect]
     Active Substance: MOXIFLOXACIN
     Dosage: 400 MILLIGRAM DAILY;
     Route: 048
     Dates: start: 20171016
  15. CLOFAZIMINE [Suspect]
     Active Substance: CLOFAZIMINE
     Indication: PULMONARY TUBERCULOSIS
     Dosage: 100 MILLIGRAM DAILY;
     Route: 048
     Dates: start: 20170718, end: 20170927
  16. ETHAMBUTOL [Suspect]
     Active Substance: ETHAMBUTOL HYDROCHLORIDE
     Indication: PULMONARY TUBERCULOSIS
     Dosage: 1000 MILLIGRAM DAILY;
     Route: 048
     Dates: start: 20170706, end: 20170710
  17. VITAMIN B6 [Concomitant]
     Active Substance: PYRIDOXINE HYDROCHLORIDE
     Indication: VITAMIN B6 DEFICIENCY
     Route: 048
     Dates: start: 20170621, end: 20171018
  18. LINEZOLID. [Suspect]
     Active Substance: LINEZOLID
     Indication: PULMONARY TUBERCULOSIS
     Dosage: 600 MILLIGRAM DAILY;
     Route: 048
     Dates: start: 20170620, end: 20171013
  19. CLOFAZIMINE [Suspect]
     Active Substance: CLOFAZIMINE
     Dosage: 100 MILLIGRAM DAILY;
     Route: 048
     Dates: start: 20171012
  20. MOXIFLOXACIN. [Suspect]
     Active Substance: MOXIFLOXACIN
     Route: 042
     Dates: start: 20170928, end: 20171015
  21. DEKRISTOL [Concomitant]
     Active Substance: CHOLECALCIFEROL
     Indication: VITAMIN D DEFICIENCY
  22. PZA (PYRAZINAMIDE) [Suspect]
     Active Substance: PYRAZINAMIDE
     Indication: PULMONARY TUBERCULOSIS
     Dosage: 1500 MILLIGRAM DAILY;
     Route: 048
     Dates: start: 20170524, end: 20170726

REACTIONS (2)
  - Helicobacter gastritis [Recovered/Resolved]
  - Bicytopenia [Recovered/Resolved with Sequelae]

NARRATIVE: CASE EVENT DATE: 20170916
